FAERS Safety Report 16482877 (Version 1)
Quarter: 2019Q2

REPORT INFORMATION
  Report Type: Report from Study
  Country: JP (occurrence: JP)
  Receive Date: 20190627
  Receipt Date: 20190627
  Transmission Date: 20190711
  Serious: Yes (Hospitalization)
  Sender: FDA-Public Use
  Company Number: JP-EISAI MEDICAL RESEARCH-EC-2019-058261

PATIENT
  Age: 57 Year
  Sex: Female
  Weight: 66 kg

DRUGS (12)
  1. FYCOMPA [Suspect]
     Active Substance: PERAMPANEL
     Dosage: DOSE AND FREQUENCY UNKNOWN
     Route: 048
     Dates: start: 20190510, end: 20190530
  2. FYCOMPA [Suspect]
     Active Substance: PERAMPANEL
     Route: 048
     Dates: start: 20190614, end: 20190620
  3. RILUTEK [Concomitant]
     Active Substance: RILUZOLE
  4. MUCODYNE [Concomitant]
     Active Substance: CARBOCYSTEINE
  5. FYCOMPA [Suspect]
     Active Substance: PERAMPANEL
     Indication: AMYOTROPHIC LATERAL SCLEROSIS
     Dosage: DOSE AND FREQUENCY UNKNOWN
     Route: 048
     Dates: start: 20180509, end: 20190409
  6. RADICUT [Concomitant]
     Active Substance: EDARAVONE
  7. LIXIANA OD [Concomitant]
     Active Substance: EDOXABAN TOSYLATE
  8. MAGMITT [Concomitant]
     Active Substance: MAGNESIUM OXIDE
  9. CALONAL [Concomitant]
     Active Substance: ACETAMINOPHEN
  10. FYCOMPA [Suspect]
     Active Substance: PERAMPANEL
     Route: 048
     Dates: start: 20190621
  11. FYCOMPA [Suspect]
     Active Substance: PERAMPANEL
     Route: 048
     Dates: start: 20190531, end: 20190613
  12. MOHRUS TAPE [Concomitant]
     Active Substance: KETOPROFEN

REACTIONS (1)
  - Hepatic function abnormal [Not Recovered/Not Resolved]

NARRATIVE: CASE EVENT DATE: 20190621
